FAERS Safety Report 7595733-2 (Version None)
Quarter: 2011Q3

REPORT INFORMATION
  Report Type: 
  Country: None (occurrence: None)
  Receive Date: 20110707
  Receipt Date: 20110624
  Transmission Date: 20111222
  Serious: Yes (Other)
  Sender: FDA-Public Use
  Company Number: US-ELI_LILLY_AND_COMPANY-US201007000097

PATIENT
  Sex: Female

DRUGS (13)
  1. FORTEO [Suspect]
     Dosage: 20 UG, DAILY (1/D)
  2. FORTEO [Suspect]
     Dosage: 20 UG, DAILY (1/D)
  3. METOPROLOL TARTRATE [Concomitant]
     Indication: BLOOD PRESSURE
  4. FORTEO [Suspect]
     Dosage: 20 UG, DAILY (1/D)
  5. FORTEO [Suspect]
     Dosage: 20 UG, DAILY (1/D)
  6. FORTEO [Suspect]
     Dosage: 20 UG, DAILY (1/D)
  7. FORTEO [Suspect]
     Dosage: 20 UG, DAILY (1/D)
  8. FORTEO [Suspect]
     Dosage: 20 UG, DAILY (1/D)
  9. FORTEO [Suspect]
     Dosage: 20 UG, DAILY (1/D)
  10. FORTEO [Suspect]
     Indication: OSTEOPOROSIS
     Dosage: 20 UG, DAILY (1/D)
     Dates: start: 20100618
  11. FORTEO [Suspect]
     Dosage: 20 UG, QD
  12. ASPIRIN [Concomitant]
     Dosage: UNK, DAILY (1/D)
  13. FORTEO [Suspect]
     Dosage: 20 UG, DAILY (1/D)

REACTIONS (26)
  - PAIN [None]
  - STRESS [None]
  - PAIN IN EXTREMITY [None]
  - ARTHRALGIA [None]
  - BLOOD GLUCOSE DECREASED [None]
  - DIABETES MELLITUS [None]
  - OPTIC ATROPHY [None]
  - BLOOD ALKALINE PHOSPHATASE INCREASED [None]
  - MUSCULAR WEAKNESS [None]
  - NECK PAIN [None]
  - BLOOD PRESSURE INCREASED [None]
  - MUSCLE SPASMS [None]
  - DYSSTASIA [None]
  - INJECTION SITE HAEMORRHAGE [None]
  - DEMENTIA [None]
  - INJECTION SITE HAEMATOMA [None]
  - VISUAL ACUITY REDUCED [None]
  - SOMNOLENCE [None]
  - MEMORY IMPAIRMENT [None]
  - LOSS OF CONSCIOUSNESS [None]
  - MUSCULOSKELETAL STIFFNESS [None]
  - BLINDNESS UNILATERAL [None]
  - BACK PAIN [None]
  - WRONG TECHNIQUE IN DRUG USAGE PROCESS [None]
  - ASPARTATE AMINOTRANSFERASE DECREASED [None]
  - CONSTIPATION [None]
